FAERS Safety Report 7270549-5 (Version None)
Quarter: 2011Q1

REPORT INFORMATION
  Report Type: 
  Country: None (occurrence: None)
  Receive Date: 20110125
  Receipt Date: 20110125
  Transmission Date: 20110831
  Serious: Yes (Other)
  Sender: FDA-Public Use
  Company Number: None

PATIENT
  Sex: Female

DRUGS (1)
  1. SERTRALINE HYDROCHLORIDE [Suspect]
     Indication: COLITIS
     Dosage: 50 MG ONCE PO QD PILL - DAW
     Route: 048
     Dates: start: 20090708, end: 20090724

REACTIONS (3)
  - HEADACHE [None]
  - COLITIS [None]
  - CONDITION AGGRAVATED [None]
